FAERS Safety Report 20517836 (Version 1)
Quarter: 2022Q1

REPORT INFORMATION
  Report Type: Spontaneous
  Country: US (occurrence: None)
  Receive Date: 20220224
  Receipt Date: 20220224
  Transmission Date: 20220423
  Serious: Yes (Other)
  Sender: FDA-Public Use
  Company Number: None

PATIENT
  Sex: Female

DRUGS (2)
  1. LEVOTHYROXINE [Suspect]
     Active Substance: LEVOTHYROXINE
  2. LEVOTHYROXINE [Suspect]
     Active Substance: LEVOTHYROXINE

REACTIONS (9)
  - Depressed level of consciousness [None]
  - Arthralgia [None]
  - Pain [None]
  - Alopecia [None]
  - Skin disorder [None]
  - Constipation [None]
  - Gastrointestinal disorder [None]
  - Visual impairment [None]
  - Blood cholesterol abnormal [None]
